APPROVED DRUG PRODUCT: LINEZOLID IN SODIUM CHLORIDE 0.9% IN PLASTIC CONTAINER
Active Ingredient: LINEZOLID
Strength: 600MG/300ML (2MG/ML)
Dosage Form/Route: SOLUTION;INTRAVENOUS
Application: N206473 | Product #001
Applicant: HOSPIRA INC
Approved: Jun 18, 2015 | RLD: Yes | RS: Yes | Type: RX